FAERS Safety Report 8007951-X (Version None)
Quarter: 2011Q4

REPORT INFORMATION
  Report Type: 
  Country: None (occurrence: None)
  Receive Date: 20111227
  Receipt Date: 20111213
  Transmission Date: 20120403
  Serious: Yes (Hospitalization, Other)
  Sender: FDA-Public Use
  Company Number: US-ELI_LILLY_AND_COMPANY-US201111008571

PATIENT
  Sex: Female

DRUGS (1)
  1. FORTEO [Suspect]
     Indication: OSTEOPOROSIS
     Dosage: 20 UG, QD
     Dates: start: 20110301

REACTIONS (8)
  - INTESTINAL PERFORATION [None]
  - LARYNGITIS [None]
  - COLON CANCER [None]
  - SPEECH DISORDER [None]
  - BACK PAIN [None]
  - ABSCESS [None]
  - ASTHENIA [None]
  - METASTASES TO LYMPH NODES [None]
